FAERS Safety Report 6603160-7 (Version None)
Quarter: 2010Q1

REPORT INFORMATION
  Report Type: 
  Country: None (occurrence: None)
  Receive Date: 20100218
  Receipt Date: 20100204
  Transmission Date: 20100710
  Serious: Yes (Hospitalization)
  Sender: FDA-Public Use
  Company Number: 1000011461

PATIENT
  Age: 15 Year
  Sex: Female

DRUGS (2)
  1. CARBAMAZEPINE [Suspect]
     Dosage: TITRATION UPTO 2400 MG MAXIMUM
     Dates: start: 20060220, end: 20060412
  2. PHENYTOIN [Suspect]
     Dosage: 400 MG (400 MG, 1 IN 1 D)
     Dates: start: 20060304, end: 20060412

REACTIONS (9)
  - ANGIOPATHY [None]
  - CEREBRAL HAEMORRHAGE [None]
  - DRUG RASH WITH EOSINOPHILIA AND SYSTEMIC SYMPTOMS [None]
  - HAEMOLYSIS [None]
  - HEPATITIS TOXIC [None]
  - LEUKOPENIA [None]
  - THROMBOCYTOPENIA [None]
  - TOXIC SKIN ERUPTION [None]
  - UNEVALUABLE EVENT [None]
